FAERS Safety Report 20425373 (Version 1)
Quarter: 2022Q1

REPORT INFORMATION
  Report Type: Report from Study
  Country: US (occurrence: US)
  Receive Date: 20220204
  Receipt Date: 20220204
  Transmission Date: 20220424
  Serious: No
  Sender: FDA-Public Use
  Company Number: US-EXELIXIS-CABO-21038621

PATIENT
  Age: 55 Year
  Sex: Male

DRUGS (6)
  1. CABOMETYX [Suspect]
     Active Substance: CABOZANTINIB S-MALATE
     Indication: Renal cancer
     Dosage: 40 MG, QD
     Route: 048
     Dates: start: 20210223
  2. CLINDAMYCIN [Concomitant]
     Active Substance: CLINDAMYCIN
     Dosage: UNK
  3. LEVOTHYROXINE [Concomitant]
     Active Substance: LEVOTHYROXINE
     Dosage: UNK
  4. LORAZEPAM [Concomitant]
     Active Substance: LORAZEPAM
     Dosage: UNK
  5. AMLODIPINE [Concomitant]
     Active Substance: AMLODIPINE BESYLATE
  6. BENZONATATE [Concomitant]
     Active Substance: BENZONATATE

REACTIONS (9)
  - Contusion [Unknown]
  - Nocturia [Unknown]
  - Sensitive skin [Unknown]
  - Dry mouth [Unknown]
  - Hair colour changes [Unknown]
  - Constipation [Unknown]
  - Asthenia [Unknown]
  - Blood pressure increased [Unknown]
  - Stomatitis [Unknown]

NARRATIVE: CASE EVENT DATE: 20210201
